FAERS Safety Report 6084781-X (Version None)
Quarter: 2009Q1

REPORT INFORMATION
  Report Type: 
  Country: None (occurrence: None)
  Receive Date: 20090217
  Receipt Date: 20090202
  Transmission Date: 20090719
  Serious: Yes (Other)
  Sender: FDA-Public Use
  Company Number: 220001L09GBR

PATIENT
  Age: 41 Year
  Sex: Female

DRUGS (5)
  1. SOMATROPIN (SOMATROPIN) [Suspect]
     Indication: HYPOPITUITARISM
     Dosage: 0.6 NOT REPORTED, 1 IN 1 DAYS;
     Dates: start: 20041201, end: 20050201
  2. SOMATROPIN (SOMATROPIN) [Suspect]
     Indication: HYPOPITUITARISM
     Dosage: 0.6 NOT REPORTED, 1 IN 1 DAYS;
     Dates: start: 20050201, end: 20060401
  3. INSULIN (INSULIN /00030501/) [Concomitant]
  4. HORMONE REPLACEMENT THERAPY (HORMONES AND RELATED AGENTS) [Concomitant]
  5. SIMVASTATIN [Concomitant]

REACTIONS (2)
  - BREAST MASS [None]
  - RETINOPATHY PROLIFERATIVE [None]
